FAERS Safety Report 7926139-1 (Version None)
Quarter: 2011Q4

REPORT INFORMATION
  Report Type: 
  Country: None (occurrence: None)
  Receive Date: 20111118
  Receipt Date: 20110419
  Transmission Date: 20120403
  Serious: No
  Sender: FDA-Public Use
  Company Number: US-AMGEN-USASP2011012802

PATIENT
  Age: 61 Year
  Sex: Female

DRUGS (2)
  1. REMICADE [Concomitant]
     Dosage: UNK
     Dates: start: 20110101, end: 20110207
  2. ENBREL [Suspect]
     Indication: RHEUMATOID ARTHRITIS
     Dosage: 50 MG, QWK
     Dates: start: 20100901

REACTIONS (4)
  - ARTHRITIS [None]
  - ASTHENIA [None]
  - NODULE [None]
  - FEELING ABNORMAL [None]
